FAERS Safety Report 5858607-0 (Version None)
Quarter: 2008Q3

REPORT INFORMATION
  Report Type: 
  Country: None (occurrence: None)
  Receive Date: 20080826
  Receipt Date: 20080815
  Transmission Date: 20090109
  Serious: Yes (Other)
  Sender: FDA-Public Use
  Company Number: AU-ELI_LILLY_AND_COMPANY-AU200805003438

PATIENT
  Age: 25 Year
  Sex: Female

DRUGS (4)
  1. STRATTERA [Suspect]
     Indication: ATTENTION DEFICIT/HYPERACTIVITY DISORDER
     Dosage: 25 MG, DAILY (1/D)
     Route: 048
     Dates: start: 20080101, end: 20080101
  2. STRATTERA [Interacting]
     Dosage: 60 MG, DAILY (1/D)
     Route: 048
     Dates: start: 20080417, end: 20080101
  3. STRATTERA [Interacting]
     Dosage: 40 MG, DAILY (1/D)
     Route: 048
     Dates: start: 20080101
  4. PROXETINE [Concomitant]
     Dosage: 20 MG, UNKNOWN
     Route: 065

REACTIONS (4)
  - DRUG INTERACTION [None]
  - GASTROOESOPHAGEAL REFLUX DISEASE [None]
  - NAUSEA [None]
  - SUICIDAL IDEATION [None]
